FAERS Safety Report 17192099 (Version 1)
Quarter: 2019Q4

REPORT INFORMATION
  Report Type: Report from Study
  Country: DE (occurrence: DE)
  Receive Date: 20191223
  Receipt Date: 20191223
  Transmission Date: 20200122
  Serious: Yes (Congenital Anomaly)
  Sender: FDA-Public Use
  Company Number: DE-TEVA-2019-DE-1156773

PATIENT
  Sex: Male

DRUGS (5)
  1. AZATHIOPRINE. [Suspect]
     Active Substance: AZATHIOPRINE
     Dosage: DURING THE FIRST TRIMESTER
     Route: 064
  2. MESALAZINE [Suspect]
     Active Substance: MESALAMINE
     Dosage: DURING ALL TRIMESTERS
     Route: 064
  3. PARACETAMOL [Suspect]
     Active Substance: ACETAMINOPHEN
     Indication: PYREXIA
     Dosage: AT GESTATIONAL WEEK 8+5
     Route: 064
  4. MOMETASONE [Suspect]
     Active Substance: MOMETASONE
     Dosage: DURING THE FIRST TRIMESTER
     Route: 064
  5. OMEPRAZOLE. [Suspect]
     Active Substance: OMEPRAZOLE
     Dosage: DURING ALL TRIMESTERS
     Route: 064

REACTIONS (2)
  - Foetal exposure during pregnancy [Unknown]
  - Congenital cystic kidney disease [Unknown]
